FAERS Safety Report 4330929-4 (Version None)
Quarter: 2004Q1

REPORT INFORMATION
  Report Type: 
  Country: None (occurrence: None)
  Receive Date: 20040329
  Receipt Date: 19990630
  Transmission Date: 20041129
  Serious: Yes (Death, Life-Threatening, Other)
  Sender: FDA-Public Use
  Company Number: WAES 99070078

PATIENT
  Age: 1 Day
  Sex: Female

DRUGS (5)
  1. INDOCIN [Suspect]
     Indication: PATENT DUCTUS ARTERIOSUS
     Dosage: 180 MICROGM
     Dates: start: 19990517, end: 19990517
  2. AMPICILLIN (+) CLOXACILLIN [Concomitant]
  3. HUMAN INSULIN [Concomitant]
  4. IMMUNE GLOBULIN INTRAVENOUS (HUMAN) [Concomitant]
  5. METHYLPREDNISOLONE 21-SUCCINATE [Concomitant]

REACTIONS (18)
  - ALANINE AMINOTRANSFERASE INCREASED [None]
  - ASPARTATE AMINOTRANSFERASE INCREASED [None]
  - AZOTAEMIA [None]
  - BLOOD BILIRUBIN INCREASED [None]
  - BLOOD GLUCOSE DECREASED [None]
  - BLOOD POTASSIUM INCREASED [None]
  - BLOOD SODIUM DECREASED [None]
  - CONDITION AGGRAVATED [None]
  - DISSEMINATED INTRAVASCULAR COAGULATION [None]
  - HAEMATOCRIT DECREASED [None]
  - HAEMOGLOBIN DECREASED [None]
  - HAEMORRHAGIC DIATHESIS [None]
  - HEPATIC FUNCTION ABNORMAL [None]
  - MULTI-ORGAN FAILURE [None]
  - NEONATAL DISORDER [None]
  - PLATELET COUNT DECREASED [None]
  - RENAL FAILURE [None]
  - RENAL IMPAIRMENT [None]
